FAERS Safety Report 25619301 (Version 1)
Quarter: 2025Q3

REPORT INFORMATION
  Report Type: Spontaneous
  Country: US (occurrence: None)
  Receive Date: 20250729
  Receipt Date: 20250729
  Transmission Date: 20251020
  Serious: No
  Sender: FDA-CTU
  Company Number: None

PATIENT
  Sex: Male

DRUGS (1)
  1. KESIMPTA [Suspect]
     Active Substance: OFATUMUMAB
     Indication: Multiple sclerosis
     Dosage: OTHER FREQUENCY : EVERY MONTH;?
     Route: 048
     Dates: start: 20250623

REACTIONS (4)
  - Discoloured vomit [None]
  - Chest pain [None]
  - Neck pain [None]
  - Pain in extremity [None]
